FAERS Safety Report 5248043-2 (Version None)
Quarter: 2007Q1

REPORT INFORMATION
  Report Type: 
  Country: None (occurrence: None)
  Receive Date: 20070222
  Receipt Date: 20070208
  Transmission Date: 20070707
  Serious: Yes (Death)
  Sender: FDA-Public Use
  Company Number: MEDI-0005426

PATIENT
  Age: 30 Month

DRUGS (1)
  1. SYNAGIS [Suspect]
     Dates: start: 20070125, end: 20070125

REACTIONS (1)
  - DEATH [None]
